FAERS Safety Report 4944114-6 (Version None)
Quarter: 2006Q1

REPORT INFORMATION
  Report Type: 
  Country: None (occurrence: None)
  Receive Date: 20060309
  Receipt Date: 20060224
  Transmission Date: 20060701
  Serious: Yes (Death, Hospitalization, Other)
  Sender: FDA-Public Use
  Company Number: HQWYE226101SEP05

PATIENT
  Age: 64 Year
  Sex: Female
  Weight: 72.64 kg

DRUGS (4)
  1. PREMARIN [Suspect]
     Indication: MENOPAUSE
  2. CYCRIN [Suspect]
     Indication: MENOPAUSE
  3. MEDROXYPROGESTERONE [Suspect]
     Indication: MENOPAUSE
  4. PROVERA [Suspect]
     Indication: MENOPAUSE

REACTIONS (1)
  - BREAST CANCER FEMALE [None]
